FAERS Safety Report 4629019-2 (Version None)
Quarter: 2005Q2

REPORT INFORMATION
  Report Type: 
  Country: None (occurrence: None)
  Receive Date: 20050407
  Receipt Date: 20050330
  Transmission Date: 20051028
  Serious: Yes (Hospitalization, Other)
  Sender: FDA-Public Use
  Company Number: US-BOEHRINGER INGELHEIM PHARMACEUTICALS, INC.-2005-BP-05166BP

PATIENT
  Age: 73 Year
  Sex: Female

DRUGS (1)
  1. COMBIVENT [Suspect]
     Indication: CHRONIC OBSTRUCTIVE PULMONARY DISEASE
     Route: 055
     Dates: start: 20030101

REACTIONS (5)
  - ADENOID CYSTIC CARCINOMA [None]
  - COUGH [None]
  - DYSPNOEA [None]
  - PULMONARY MASS [None]
  - WHEEZING [None]
